FAERS Safety Report 5411467-4 (Version None)
Quarter: 2007Q3

REPORT INFORMATION
  Report Type: 
  Country: None (occurrence: None)
  Receive Date: 20070810
  Receipt Date: 20070731
  Transmission Date: 20080115
  Serious: Yes (Hospitalization, Other)
  Sender: FDA-Public Use
  Company Number: JP-PFIZER INC-2007056517

PATIENT

DRUGS (8)
  1. MIGLITOL TABLET [Suspect]
     Indication: DIABETES MELLITUS
     Dosage: DAILY DOSE:150MG
     Route: 048
     Dates: start: 20070605, end: 20070702
  2. TICLOPIDINE HCL [Concomitant]
     Dosage: DAILY DOSE:300MG
     Route: 048
  3. CANDESARTAN CILEXETIL [Concomitant]
     Route: 048
     Dates: start: 20070220, end: 20070703
  4. TRICHLORMETHIAZIDE [Concomitant]
     Dosage: DAILY DOSE:2MG
     Route: 048
     Dates: start: 20070403, end: 20070703
  5. ASPIRIN [Concomitant]
     Dosage: DAILY DOSE:100MG
     Route: 048
  6. FRANDOL [Concomitant]
     Dosage: DAILY DOSE:40MG
     Route: 048
  7. GLIMICRON [Concomitant]
     Indication: DIABETES MELLITUS
     Dosage: DAILY DOSE:80MG
     Route: 048
  8. ADALAT [Concomitant]
     Dosage: DAILY DOSE:40MG
     Route: 048

REACTIONS (5)
  - ANAEMIA [None]
  - DUODENAL ULCER [None]
  - GASTROINTESTINAL HAEMORRHAGE [None]
  - PALLOR [None]
  - SMALL INTESTINAL HAEMORRHAGE [None]
